FAERS Safety Report 6534774-0 (Version None)
Quarter: 2010Q1

REPORT INFORMATION
  Report Type: 
  Country: None (occurrence: None)
  Receive Date: 20100108
  Receipt Date: 20091012
  Transmission Date: 20100710
  Serious: No
  Sender: FDA-Public Use
  Company Number: 2009-00654

PATIENT
  Age: 34 Year
  Sex: Female
  Weight: 131.5431 kg

DRUGS (1)
  1. MULTISYMPTOM TO GO DAYTIME (SPOON) [Suspect]
     Dosage: QID
     Dates: start: 20091009, end: 20091012

REACTIONS (2)
  - AGEUSIA [None]
  - ANOSMIA [None]
